FAERS Safety Report 16122276 (Version 1)
Quarter: 2019Q1

REPORT INFORMATION
  Report Type: Spontaneous
  Country: US (occurrence: US)
  Receive Date: 20190327
  Receipt Date: 20190327
  Transmission Date: 20190418
  Serious: No
  Sender: FDA-Public Use
  Company Number: PHEH2019US012104

PATIENT
  Sex: Female

DRUGS (2)
  1. OLOPATADINE. [Suspect]
     Active Substance: OLOPATADINE
     Indication: EYE INFLAMMATION
     Route: 065
  2. OLOPATADINE. [Suspect]
     Active Substance: OLOPATADINE
     Indication: DRY EYE

REACTIONS (1)
  - Drug ineffective [Unknown]
